FAERS Safety Report 8163454-3 (Version None)
Quarter: 2012Q1

REPORT INFORMATION
  Report Type: 
  Country: None (occurrence: None)
  Receive Date: 20120221
  Receipt Date: 20120207
  Transmission Date: 20120608
  Serious: Yes (Other)
  Sender: FDA-Public Use
  Company Number: TPA2012A00828

PATIENT
  Age: 6 Decade
  Sex: Male

DRUGS (1)
  1. ADENURIC (FEBUXOSTAT) [Suspect]
     Indication: HYPERURICAEMIA
     Dosage: 80 MG, 1 IN 1 D, ORAL
     Route: 048
     Dates: start: 20120203, end: 20120203

REACTIONS (2)
  - PARAESTHESIA ORAL [None]
  - DIARRHOEA [None]
